FAERS Safety Report 8140008-6 (Version None)
Quarter: 2012Q1

REPORT INFORMATION
  Report Type: 
  Country: None (occurrence: None)
  Receive Date: 20120215
  Receipt Date: 20120206
  Transmission Date: 20120608
  Serious: Yes (Hospitalization, Other)
  Sender: FDA-Public Use
  Company Number: US-ASTRAZENECA-2010SE20147

PATIENT
  Age: 51 Year
  Sex: Female

DRUGS (1)
  1. NEXIUM [Suspect]
     Route: 048

REACTIONS (17)
  - GASTRIC CANCER [None]
  - NEOPLASM MALIGNANT [None]
  - BACK DISORDER [None]
  - CYST [None]
  - METASTASES TO GASTROINTESTINAL TRACT [None]
  - EPIGASTRIC DISCOMFORT [None]
  - DRUG DOSE OMISSION [None]
  - APHAGIA [None]
  - METASTASES TO OESOPHAGUS [None]
  - ABDOMINAL PAIN UPPER [None]
  - PAIN [None]
  - WEIGHT DECREASED [None]
  - CERVICAL VERTEBRAL FRACTURE [None]
  - ROAD TRAFFIC ACCIDENT [None]
  - REGURGITATION [None]
  - ACCIDENT AT WORK [None]
  - THERAPEUTIC RESPONSE UNEXPECTED [None]
